FAERS Safety Report 15324127 (Version 1)
Quarter: 2018Q3

REPORT INFORMATION
  Report Type: Report from Study
  Country: DE (occurrence: DE)
  Receive Date: 20180828
  Receipt Date: 20180828
  Transmission Date: 20181010
  Serious: Yes (Hospitalization)
  Sender: FDA-Public Use
  Company Number: DE-ROCHE-2175234

PATIENT
  Age: 78 Year
  Sex: Male

DRUGS (1)
  1. VISMODEGIB. [Suspect]
     Active Substance: VISMODEGIB
     Indication: BASAL CELL CARCINOMA
     Route: 048
     Dates: start: 20171018, end: 20180109

REACTIONS (1)
  - Angina pectoris [Not Recovered/Not Resolved]

NARRATIVE: CASE EVENT DATE: 20171129
